FAERS Safety Report 8599600-7 (Version None)
Quarter: 2012Q3

REPORT INFORMATION
  Report Type: 
  Country: None (occurrence: None)
  Receive Date: 20120816
  Receipt Date: 20120813
  Transmission Date: 20120928
  Serious: No
  Sender: FDA-Public Use
  Company Number: US-PFIZER INC-2012196568

PATIENT
  Sex: Female

DRUGS (2)
  1. PRISTIQ [Suspect]
     Dosage: 100 MG, UNK
  2. ESTROGEN/PROGESTERONE [Suspect]
     Indication: PREMENSTRUAL SYNDROME
     Dosage: UNK

REACTIONS (3)
  - FIBROMYALGIA [None]
  - EMOTIONAL DISORDER [None]
  - MENTAL DISORDER [None]
